FAERS Safety Report 12524578 (Version 1)
Quarter: 2016Q3

REPORT INFORMATION
  Report Type: Spontaneous
  Country: US (occurrence: US)
  Receive Date: 20160704
  Receipt Date: 20160704
  Transmission Date: 20161109
  Serious: Yes (Other)
  Sender: FDA-Public Use
  Company Number: US-TEVA-672958USA

PATIENT
  Age: 44 Year
  Sex: Female

DRUGS (1)
  1. ZECUITY [Suspect]
     Active Substance: SUMATRIPTAN SUCCINATE
     Indication: MIGRAINE
     Dosage: 6.5 MG / 4 HOURS
     Route: 062
     Dates: start: 2016, end: 2016

REACTIONS (10)
  - Application site pain [Recovered/Resolved]
  - Sunburn [Recovered/Resolved]
  - Application site warmth [Recovered/Resolved]
  - Application site erythema [Recovered/Resolved]
  - Application site discolouration [Recovered/Resolved]
  - Incorrect drug administration duration [Unknown]
  - Wrong technique in product usage process [Unknown]
  - Application site dryness [Recovered/Resolved]
  - Drug ineffective [Unknown]
  - Application site exfoliation [Recovered/Resolved]

NARRATIVE: CASE EVENT DATE: 201604
